APPROVED DRUG PRODUCT: TYZEKA
Active Ingredient: TELBIVUDINE
Strength: 600MG
Dosage Form/Route: TABLET;ORAL
Application: N022011 | Product #001
Applicant: NOVARTIS PHARMACEUTICALS CORP
Approved: Oct 25, 2006 | RLD: Yes | RS: No | Type: DISCN